FAERS Safety Report 9527760 (Version 2)
Quarter: 2013Q4

REPORT INFORMATION
  Report Type: Spontaneous
  Country: GB (occurrence: GB)
  Receive Date: 20130917
  Receipt Date: 20131219
  Transmission Date: 20140711
  Serious: Yes (Hospitalization)
  Sender: FDA-Public Use
  Company Number: GB-RANBAXY-2013R1-72952

PATIENT
  Age: 78 Year
  Sex: Male

DRUGS (8)
  1. ASPIRIN [Suspect]
     Indication: CORONARY ARTERY BYPASS
     Dosage: 75 MG, QD
     Route: 048
     Dates: start: 201301
  2. CLOPIDOGREL [Suspect]
     Indication: CORONARY ARTERY BYPASS
     Dosage: 75 MG, QD
     Route: 048
     Dates: start: 201301
  3. NAPROXEN [Suspect]
     Indication: SCIATICA
     Dosage: 500 MG, BID
     Route: 048
     Dates: start: 20130731
  4. AMITRIPTYLINE [Concomitant]
     Indication: PRODUCT USED FOR UNKNOWN INDICATION
     Dosage: UNK
     Route: 065
  5. BISOPROLOL [Concomitant]
     Indication: PRODUCT USED FOR UNKNOWN INDICATION
     Dosage: UNK
     Route: 065
  6. INDAPAMIDE [Concomitant]
     Indication: PRODUCT USED FOR UNKNOWN INDICATION
     Dosage: UNK
     Route: 065
  7. RAMIPRIL [Concomitant]
     Indication: PRODUCT USED FOR UNKNOWN INDICATION
     Dosage: UNK
     Route: 065
  8. RANITIDINE [Concomitant]
     Indication: PRODUCT USED FOR UNKNOWN INDICATION
     Dosage: UNK
     Route: 065

REACTIONS (1)
  - Rectal haemorrhage [Recovering/Resolving]
